FAERS Safety Report 5338259-9 (Version None)
Quarter: 2007Q2

REPORT INFORMATION
  Report Type: 
  Country: None (occurrence: None)
  Receive Date: 20070328
  Receipt Date: 20070131
  Transmission Date: 20071010
  Serious: Yes (Hospitalization, Other)
  Sender: FDA-Public Use
  Company Number: 34032

PATIENT
  Age: 2 Year
  Sex: Female
  Weight: 8.6183 kg

DRUGS (1)
  1. KETAMINE HCL [Suspect]
     Indication: SEDATION

REACTIONS (1)
  - HALLUCINATION [None]
